FAERS Safety Report 5489662-8 (Version None)
Quarter: 2007Q4

REPORT INFORMATION
  Report Type: 
  Country: None (occurrence: None)
  Receive Date: 20071018
  Receipt Date: 20071010
  Transmission Date: 20080405
  Serious: Yes (Hospitalization)
  Sender: FDA-Public Use
  Company Number: B0491485A

PATIENT
  Age: 67 Year
  Sex: Female

DRUGS (1)
  1. AUGMENTIN '125' [Suspect]
     Route: 048
     Dates: start: 20070426, end: 20070426

REACTIONS (3)
  - PRURITUS [None]
  - RALES [None]
  - RASH ERYTHEMATOUS [None]
